FAERS Safety Report 10206396 (Version 1)
Quarter: 2014Q2

REPORT INFORMATION
  Report Type: Spontaneous
  Country: US (occurrence: None)
  Receive Date: 20140528
  Receipt Date: 20140528
  Transmission Date: 20141212
  Serious: Yes (Hospitalization)
  Sender: FDA-Public Use
  Company Number: None

PATIENT
  Age: 14 Year
  Sex: Female

DRUGS (1)
  1. BACTRIM [Suspect]
     Indication: ACNE
     Dates: start: 20121101, end: 20130105

REACTIONS (6)
  - Respiratory distress [None]
  - Asthma [None]
  - Weight decreased [None]
  - Hepatitis acute [None]
  - Upper respiratory tract infection [None]
  - Drug-induced liver injury [None]
